FAERS Safety Report 17012875 (Version 11)
Quarter: 2024Q2

REPORT INFORMATION
  Report Type: Report from Study
  Country: DE (occurrence: DE)
  Receive Date: 20191109
  Receipt Date: 20240430
  Transmission Date: 20240716
  Serious: Yes (Hospitalization, Other)
  Sender: FDA-Public Use
  Company Number: DE-BRISTOL-MYERS SQUIBB COMPANY-BMS-2019-095625

PATIENT
  Age: 70 Year
  Sex: Male
  Weight: 78 kg

DRUGS (5)
  1. NIVOLUMAB [Suspect]
     Active Substance: NIVOLUMAB
     Indication: Malignant melanoma
     Dosage: 78 MILLIGRAM, Q3WK
     Route: 042
     Dates: start: 20190703, end: 20190703
  2. IPILIMUMAB [Suspect]
     Active Substance: IPILIMUMAB
     Indication: Malignant melanoma
     Dosage: 234 MILLIGRAM, Q3WK
     Route: 042
     Dates: start: 20190703, end: 20190703
  3. POTASSIUM CHLORIDE [Concomitant]
     Active Substance: POTASSIUM CHLORIDE
     Dosage: ACTIVE SUBSTANCE: KALIUMCHLORID, DAILY DOSE: 160 UNBEKANNT, ?APPLICATION ROUTE: PER ORAL, PHARMACEUT
     Route: 048
     Dates: start: 20190715, end: 20190729
  4. POTASSIUM CHLORIDE [Concomitant]
     Active Substance: POTASSIUM CHLORIDE
     Dosage: DAILY DOSE: 20 UNBEKANNT, APPLICATION ROUTE: INTRAVENOUS, PHARMACEUTICAL FORM: INFUSION,PERIOD: ?15.
     Route: 042
     Dates: start: 20190715, end: 20190729
  5. METOCLOPRAMIDE HYDROCHLORIDE [Concomitant]
     Active Substance: METOCLOPRAMIDE HYDROCHLORIDE
     Dosage: DOSE: 30 MG/M??
     Route: 042
     Dates: start: 20190715, end: 20210228

REACTIONS (9)
  - Autoimmune disorder [Recovered/Resolved]
  - Acute kidney injury [Recovered/Resolved]
  - Diarrhoea [Recovered/Resolved]
  - Hypokalaemia [Recovered/Resolved]
  - Cardiac fibrillation [Recovering/Resolving]
  - Vomiting [Recovered/Resolved]
  - Skin disorder [Recovered/Resolved]
  - Sinus tachycardia [Recovered/Resolved]
  - Abdominal pain [Recovered/Resolved]

NARRATIVE: CASE EVENT DATE: 20190715
